FAERS Safety Report 7539525-9 (Version None)
Quarter: 2011Q2

REPORT INFORMATION
  Report Type: 
  Country: None (occurrence: None)
  Receive Date: 20110609
  Receipt Date: 20110609
  Transmission Date: 20111010
  Serious: Yes (Life-Threatening, Other)
  Sender: FDA-Public Use
  Company Number: None

PATIENT
  Age: 83 Year
  Sex: Male
  Weight: 74 kg

DRUGS (1)
  1. LIDOCAINE [Suspect]
     Indication: PAIN
     Dosage: 15ML ONCE SQ
     Route: 058
     Dates: start: 20110330, end: 20110330

REACTIONS (5)
  - PALPITATIONS [None]
  - CARDIO-RESPIRATORY ARREST [None]
  - BUNDLE BRANCH BLOCK [None]
  - CONFUSIONAL STATE [None]
  - CONVULSION [None]
